FAERS Safety Report 10583781 (Version 1)
Quarter: 2014Q4

REPORT INFORMATION
  Report Type: Spontaneous
  Country: CA (occurrence: None)
  Receive Date: 20141112
  Receipt Date: 20141112
  Transmission Date: 20150529
  Serious: Yes (Other)
  Sender: FDA-Public Use
  Company Number: 20140719

PATIENT
  Age: 58 Year
  Sex: Female

DRUGS (11)
  1. VENOFER (IRON SUCROSE INJECTION, USP) (2340C) (IRON SUCROSE INJECTION) 20 MG/ML [Suspect]
     Active Substance: IRON SUCROSE
     Indication: IRON DEFICIENCY ANAEMIA
     Dosage: 500 MG EVERY 2 WEEKS
     Route: 042
     Dates: start: 2010, end: 20141009
  2. VENTOLLIN (ALBUTEROL SULFATE) [Concomitant]
  3. TESTOSTERONE. [Concomitant]
     Active Substance: TESTOSTERONE
  4. ATOVENT (IPRATROPIUM BROMIDE) [Concomitant]
  5. METOPROLOL [Concomitant]
     Active Substance: METOPROLOL
  6. SEREVENT (SALMETEROL XINAFOATE) [Concomitant]
  7. ALVESCO (CICLESONIDE) [Concomitant]
  8. AZITHROMYCIN [Concomitant]
     Active Substance: AZITHROMYCIN ANHYDROUS
  9. OMEPRAZOLE. [Concomitant]
     Active Substance: OMEPRAZOLE
  10. PREDNISONE. [Concomitant]
     Active Substance: PREDNISONE
  11. LEVOTHYROXINE [Concomitant]
     Active Substance: LEVOTHYROXINE

REACTIONS (6)
  - Oropharyngeal pain [None]
  - Overdose [None]
  - Rash [None]
  - Off label use [None]
  - Throat tightness [None]
  - Hypersensitivity [None]

NARRATIVE: CASE EVENT DATE: 20141009
